FAERS Safety Report 5195291-6 (Version None)
Quarter: 2006Q4

REPORT INFORMATION
  Report Type: 
  Country: None (occurrence: None)
  Receive Date: 20061229
  Receipt Date: 20061204
  Transmission Date: 20070319
  Serious: Yes (Other)
  Sender: FDA-Public Use
  Company Number: JP-PFIZER INC-2006150890

PATIENT
  Age: 63 Year
  Sex: Male

DRUGS (7)
  1. NORVASC [Suspect]
     Route: 048
  2. NORVASC [Suspect]
     Route: 048
  3. RENIVACE [Suspect]
     Route: 048
  4. NU LOTAN [Concomitant]
     Route: 048
  5. MILTAX [Concomitant]
     Route: 062
  6. KETOPROFEN [Concomitant]
     Route: 062
  7. VOALLA [Concomitant]
     Route: 062

REACTIONS (2)
  - OCULAR ICTERUS [None]
  - YELLOW SKIN [None]
